FAERS Safety Report 4437387-X (Version None)
Quarter: 2004Q3

REPORT INFORMATION
  Report Type: 
  Country: None (occurrence: None)
  Receive Date: 20040726
  Receipt Date: 20040401
  Transmission Date: 20050211
  Serious: No
  Sender: FDA-Public Use
  Company Number: USA040463763

PATIENT
  Age: 81 Year
  Sex: Female

DRUGS (3)
  1. FORTEO [Suspect]
     Indication: OSTEOPOROSIS
     Dosage: 20 UG/ 1 DAY
     Dates: start: 20030401
  2. HUMULIN R [Concomitant]
  3. LANTUS [Concomitant]

REACTIONS (3)
  - COUGH [None]
  - FATIGUE [None]
  - NASOPHARYNGITIS [None]
